FAERS Safety Report 9442016 (Version 2)
Quarter: 2013Q4

REPORT INFORMATION
  Report Type: Spontaneous
  Country: IT (occurrence: IT)
  Receive Date: 20130806
  Receipt Date: 20131016
  Transmission Date: 20140711
  Serious: Yes (Hospitalization)
  Sender: FDA-Public Use
  Company Number: IT-ROCHE-1257533

PATIENT
  Age: 41 Year
  Sex: Male

DRUGS (3)
  1. PEGASYS [Suspect]
     Indication: CHRONIC HEPATITIS
     Route: 058
     Dates: start: 20130527, end: 20130702
  2. COPEGUS [Suspect]
     Indication: CHRONIC HEPATITIS
     Route: 048
     Dates: start: 20130527, end: 20130702
  3. INCIVO [Suspect]
     Indication: CHRONIC HEPATITIS
     Route: 048
     Dates: start: 20130527, end: 20130702

REACTIONS (4)
  - Anaemia [Unknown]
  - Asthenia [Unknown]
  - Gingival bleeding [Unknown]
  - Thrombocytopenia [Unknown]
